FAERS Safety Report 10065060 (Version 3)
Quarter: 2014Q2

REPORT INFORMATION
  Report Type: Spontaneous
  Country: US (occurrence: US)
  Receive Date: 20140408
  Receipt Date: 20140529
  Transmission Date: 20141212
  Serious: Yes (Death, Life-Threatening, Hospitalization, Other)
  Sender: FDA-Public Use
  Company Number: US-MERCK-1404USA004166

PATIENT
  Sex: Male
  Weight: 98.87 kg

DRUGS (8)
  1. JANUVIA [Suspect]
     Indication: TYPE 2 DIABETES MELLITUS
     Dosage: 100 MG, QAM
     Route: 048
     Dates: start: 20080701, end: 20080813
  2. JANUVIA [Suspect]
     Dosage: 100 MG QD
     Route: 048
     Dates: start: 20081204, end: 20090520
  3. LIPITOR [Concomitant]
     Dosage: 20 MG, QD
     Route: 048
     Dates: start: 20080516
  4. GLUCOPHAGE [Concomitant]
     Dosage: 500 MG, BID
     Dates: start: 20080402
  5. DIABETA [Concomitant]
     Dosage: 5 MG, BID
     Route: 048
     Dates: start: 20080204
  6. LOPRESSOR [Concomitant]
     Dosage: 25 MG, BID
     Route: 048
     Dates: start: 20080124
  7. NITROSTAT [Concomitant]
     Dosage: 0.4 MG, UNK
     Dates: start: 20050819
  8. ARISTOCORT (TRIAMCINOLONE ACETONIDE) [Concomitant]
     Indication: SKIN LESION
     Dosage: 0.5 DF, BID
     Dates: start: 20040521

REACTIONS (34)
  - Pancreatic carcinoma [Fatal]
  - Bile duct stent insertion [Unknown]
  - Diabetes mellitus inadequate control [Unknown]
  - Pancreatic duct dilatation [Unknown]
  - Dilatation intrahepatic duct acquired [Unknown]
  - Insulin-requiring type 2 diabetes mellitus [Recovering/Resolving]
  - Biliary tract disorder [Unknown]
  - Intervertebral disc space narrowing [Unknown]
  - Prostatitis [Unknown]
  - Dysphonia [Unknown]
  - Renal cyst [Unknown]
  - Arteriosclerosis [Unknown]
  - Nephrolithiasis [Unknown]
  - Atelectasis [Unknown]
  - Facet joint syndrome [Unknown]
  - Vertebral osteophyte [Unknown]
  - Arteriosclerosis coronary artery [Unknown]
  - Aortic calcification [Unknown]
  - Disease progression [Unknown]
  - Hepatitis cholestatic [Unknown]
  - Coronary artery disease [Unknown]
  - Polymyalgia rheumatica [Unknown]
  - Bile duct stone [Unknown]
  - Pruritus generalised [Recovered/Resolved]
  - Musculoskeletal pain [Unknown]
  - Blood glucose increased [Unknown]
  - Asthenia [Unknown]
  - Osteoarthritis [Unknown]
  - Cough [Unknown]
  - Dizziness [Unknown]
  - Arthralgia [Unknown]
  - Liver function test abnormal [Unknown]
  - Diarrhoea [Unknown]
  - Rash [Unknown]
